FAERS Safety Report 7772351-4 (Version None)
Quarter: 2011Q3

REPORT INFORMATION
  Report Type: 
  Country: None (occurrence: None)
  Receive Date: 20110922
  Receipt Date: 20101214
  Transmission Date: 20111222
  Serious: No
  Sender: FDA-Public Use
  Company Number: US-ASTRAZENECA-2007UW06062

PATIENT
  Age: 54 Year
  Sex: Male
  Weight: 120.2 kg

DRUGS (19)
  1. SEROQUEL [Suspect]
     Indication: DEPRESSION
     Dosage: 100 MG TO 300 MG
     Route: 048
     Dates: start: 20000101, end: 20050101
  2. SEROQUEL [Suspect]
     Route: 048
  3. SEROQUEL [Suspect]
     Route: 048
  4. SEROQUEL [Suspect]
     Dosage: 200-400 MG
     Route: 048
     Dates: start: 20030325
  5. SEROQUEL [Suspect]
     Dosage: 200-400 MG
     Route: 048
     Dates: start: 20030325
  6. SEROQUEL [Suspect]
     Route: 048
  7. SEROQUEL [Suspect]
     Dosage: 200-400 MG
     Route: 048
     Dates: start: 20030325
  8. ATENOLOL [Concomitant]
     Indication: HYPERTENSION
     Route: 048
     Dates: start: 20030114
  9. SIMVASTATIN [Concomitant]
     Indication: HYPERLIPIDAEMIA
     Dosage: 80 MG, HALF TABLET DAILY
     Route: 048
     Dates: start: 20030114
  10. GLIPIZIDE [Concomitant]
     Indication: DIABETES MELLITUS
     Route: 048
     Dates: start: 20030729
  11. PAROXETINE HCL [Concomitant]
     Indication: DEPRESSION
     Dosage: 40 MG, HALF TABLET DAILY
     Route: 048
     Dates: start: 20030331
  12. PROXETINE [Concomitant]
     Dates: start: 20050201
  13. SEROQUEL [Suspect]
     Indication: MAJOR DEPRESSION
     Dosage: 100 MG TO 300 MG
     Route: 048
     Dates: start: 20000101, end: 20050101
  14. SEROQUEL [Suspect]
     Indication: AFFECTIVE DISORDER
     Dosage: 100 MG TO 300 MG
     Route: 048
     Dates: start: 20000101, end: 20050101
  15. SEROQUEL [Suspect]
     Route: 048
     Dates: start: 20030331, end: 20050815
  16. LISINOPRIL [Concomitant]
     Route: 048
  17. SEROQUEL [Suspect]
     Route: 048
     Dates: start: 20030331, end: 20050815
  18. SEROQUEL [Suspect]
     Route: 048
     Dates: start: 20030331, end: 20050815
  19. METFORMIN [Concomitant]
     Indication: DIABETES MELLITUS
     Route: 048
     Dates: start: 20030114

REACTIONS (8)
  - GASTROOESOPHAGEAL REFLUX DISEASE [None]
  - NERVOUSNESS [None]
  - HYPERTENSION [None]
  - HYPERLIPIDAEMIA [None]
  - ARTERIAL DISORDER [None]
  - TYPE 2 DIABETES MELLITUS [None]
  - DIABETES MELLITUS INADEQUATE CONTROL [None]
  - OBESITY [None]
